FAERS Safety Report 23507778 (Version 1)
Quarter: 2024Q1

REPORT INFORMATION
  Report Type: Spontaneous
  Country: CN (occurrence: CN)
  Receive Date: 20240209
  Receipt Date: 20240209
  Transmission Date: 20240409
  Serious: Yes (Other)
  Sender: FDA-Public Use
  Company Number: CN-PFIZER INC-PV202400017973

PATIENT
  Age: 84 Year
  Sex: Male
  Weight: 95 kg

DRUGS (2)
  1. VORICONAZOLE [Suspect]
     Active Substance: VORICONAZOLE
     Indication: Pneumonia
     Dosage: 0.3 G, 2X/DAY
     Route: 041
     Dates: start: 20240126, end: 20240128
  2. SODIUM CHLORIDE [Concomitant]
     Active Substance: SODIUM CHLORIDE
     Indication: Vehicle solution use
     Dosage: 100 ML, 2X/DAY
     Route: 041
     Dates: start: 20240126, end: 20240128

REACTIONS (5)
  - Hallucination, visual [Recovering/Resolving]
  - Altered state of consciousness [Recovering/Resolving]
  - Delirium [Recovering/Resolving]
  - Dysphoria [Recovering/Resolving]
  - Dysarthria [Recovering/Resolving]

NARRATIVE: CASE EVENT DATE: 20240128
